FAERS Safety Report 11617478 (Version 3)
Quarter: 2016Q3

REPORT INFORMATION
  Report Type: Spontaneous
  Country: US (occurrence: US)
  Receive Date: 20151009
  Receipt Date: 20160815
  Transmission Date: 20161109
  Serious: Yes (Other)
  Sender: FDA-Public Use
  Company Number: US-BAYER-2015-434138

PATIENT
  Sex: Male

DRUGS (4)
  1. CIPRO [Suspect]
     Active Substance: CIPROFLOXACIN HYDROCHLORIDE
     Indication: SUBCUTANEOUS ABSCESS
     Dosage: UNK
     Dates: start: 2000, end: 2004
  2. CIPROFLOXACIN. [Suspect]
     Active Substance: CIPROFLOXACIN
     Indication: HAEMORRHOID OPERATION
     Dosage: 500 MG, UNK
     Dates: start: 20050408, end: 20050427
  3. CIPROFLOXACIN. [Suspect]
     Active Substance: CIPROFLOXACIN
     Indication: SUBCUTANEOUS ABSCESS
     Dosage: 250 UNK, UNK
     Dates: start: 20070131, end: 20070213
  4. CIPRO [Suspect]
     Active Substance: CIPROFLOXACIN HYDROCHLORIDE
     Indication: SUBCUTANEOUS ABSCESS
     Dosage: UNK
     Dates: start: 200504, end: 200703

REACTIONS (10)
  - Injury [None]
  - Emotional distress [None]
  - Mental disorder [None]
  - Nervous system disorder [None]
  - Cardiovascular disorder [None]
  - Neuropathy peripheral [None]
  - Peripheral nerve injury [None]
  - Musculoskeletal injury [None]
  - Skin injury [None]
  - Pain [None]
